FAERS Safety Report 19034904 (Version 14)
Quarter: 2025Q3

REPORT INFORMATION
  Report Type: Report from Study
  Country: US (occurrence: US)
  Receive Date: 20210320
  Receipt Date: 20250815
  Transmission Date: 20251021
  Serious: Yes (Other)
  Sender: TAKEDA
  Company Number: US-TAKEDA-US202031237

PATIENT
  Age: 59 Year
  Sex: Female
  Weight: 90 kg

DRUGS (19)
  1. LANADELUMAB [Suspect]
     Active Substance: LANADELUMAB
     Indication: Hereditary angioedema
     Dosage: 300 MILLIGRAM, Q4WEEKS
  2. LANADELUMAB [Suspect]
     Active Substance: LANADELUMAB
     Indication: Immune system disorder
     Dosage: 300 MILLIGRAM, Q2WEEKS
  3. LANADELUMAB [Suspect]
     Active Substance: LANADELUMAB
  4. KALBITOR [Suspect]
     Active Substance: ECALLANTIDE
     Indication: Immune system disorder
     Dosage: 30 MILLIGRAM, Q2WEEKS
  5. KALBITOR [Suspect]
     Active Substance: ECALLANTIDE
  6. COZAAR [Concomitant]
     Active Substance: LOSARTAN POTASSIUM
  7. TOPAMAX [Concomitant]
     Active Substance: TOPIRAMATE
  8. NORVASC [Concomitant]
     Active Substance: AMLODIPINE BESYLATE
  9. IBUPROFEN [Concomitant]
     Active Substance: IBUPROFEN
  10. MAXALT-MLT [Concomitant]
     Active Substance: RIZATRIPTAN BENZOATE
  11. EFFEXOR [Concomitant]
     Active Substance: VENLAFAXINE HYDROCHLORIDE
  12. PEPCID [Concomitant]
     Active Substance: FAMOTIDINE
  13. CARVEDILOL [Concomitant]
     Active Substance: CARVEDILOL
  14. PRISTIQ EXTENDED-RELEASE [Concomitant]
     Active Substance: DESVENLAFAXINE SUCCINATE
  15. XOLAIR [Concomitant]
     Active Substance: OMALIZUMAB
  16. BERINERT [Concomitant]
     Active Substance: HUMAN C1-ESTERASE INHIBITOR
  17. LOSARTAN POTASSIUM [Concomitant]
     Active Substance: LOSARTAN POTASSIUM
  18. PRILOSEC [Concomitant]
     Active Substance: OMEPRAZOLE MAGNESIUM
  19. EYLEA [Concomitant]
     Active Substance: AFLIBERCEPT

REACTIONS (12)
  - Sinus disorder [Unknown]
  - Pharyngitis [Unknown]
  - Sinusitis [Unknown]
  - Temporomandibular pain and dysfunction syndrome [Unknown]
  - Asthma [Unknown]
  - Multiple allergies [Unknown]
  - Sneezing [Unknown]
  - Inappropriate schedule of product administration [Unknown]
  - Product dose omission issue [Unknown]
  - Product dose omission in error [Unknown]
  - Limb discomfort [Unknown]
  - Hereditary angioedema [Recovered/Resolved]

NARRATIVE: CASE EVENT DATE: 20210224
